FAERS Safety Report 16306901 (Version 1)
Quarter: 2019Q2

REPORT INFORMATION
  Report Type: Report from Study
  Country: US (occurrence: US)
  Receive Date: 20190513
  Receipt Date: 20190513
  Transmission Date: 20190711
  Serious: No
  Sender: FDA-Public Use
  Company Number: PHEH2019US020067

PATIENT
  Age: 31 Year
  Sex: Female

DRUGS (1)
  1. COSENTYX [Suspect]
     Active Substance: SECUKINUMAB
     Indication: PSORIASIS
     Dosage: 300 MG, (2 PENS) AT WEEK 4, THEN 300 MG (2 PENS) EVERY 4 WEEKS THEREAFTER
     Route: 058

REACTIONS (1)
  - Injection site swelling [Unknown]
